FAERS Safety Report 11652875 (Version 2)
Quarter: 2016Q2

REPORT INFORMATION
  Report Type: Spontaneous
  Country: US (occurrence: US)
  Receive Date: 20151022
  Receipt Date: 20160412
  Transmission Date: 20160815
  Serious: Yes (Other)
  Sender: FDA-Public Use
  Company Number: US-MDT-ADR-2015-01995

PATIENT
  Age: 80 Year
  Sex: Male

DRUGS (10)
  1. COZAAR [Suspect]
     Active Substance: LOSARTAN POTASSIUM
     Dosage: 50MG
  2. LIPITOR [Suspect]
     Active Substance: ATORVASTATIN CALCIUM
     Dosage: 40 MG
  3. PRILOSEC [Suspect]
     Active Substance: OMEPRAZOLE MAGNESIUM
     Dosage: 20MG
  4. ASA [Suspect]
     Active Substance: ASPIRIN
     Dosage: 81
  5. BACLOFEN. [Suspect]
     Active Substance: BACLOFEN
     Dosage: 10MG
     Route: 048
  6. PROSCAR [Suspect]
     Active Substance: FINASTERIDE
     Dosage: 5MG
  7. CARDURA [Suspect]
     Active Substance: DOXAZOSIN MESYLATE
     Dosage: 2MG
  8. LOPRESSOR [Suspect]
     Active Substance: METOPROLOL TARTRATE
     Dosage: 50MG
  9. PAXIL [Suspect]
     Active Substance: PAROXETINE HYDROCHLORIDE
     Dosage: 20MG
  10. COMPOUNDED BACLOFEN [Suspect]
     Active Substance: BACLOFEN
     Dosage: 133.57MCG/DAY
     Route: 037

REACTIONS (2)
  - No therapeutic response [Recovered/Resolved]
  - Muscle spasticity [Recovered/Resolved]
